FAERS Safety Report 14815714 (Version 1)
Quarter: 2018Q2

REPORT INFORMATION
  Report Type: Spontaneous
  Country: US (occurrence: US)
  Receive Date: 20180426
  Receipt Date: 20180426
  Transmission Date: 20180711
  Serious: Yes (Hospitalization)
  Sender: FDA-Public Use
  Company Number: US-GLAXOSMITHKLINE-US2018GSK064450

PATIENT
  Age: 58 Year
  Sex: Male
  Weight: 64 kg

DRUGS (2)
  1. TUMS [Suspect]
     Active Substance: CALCIUM CARBONATE
     Indication: ANTACID THERAPY
     Dosage: UNK
  2. CALCIUM CARBONATE + MAGNESIUM CARBONATE + MAGNESIUM TRISILICATE [Suspect]
     Active Substance: CALCIUM CARBONATE\MAGNESIUM CARBONATE\MAGNESIUM TRISILICATE
     Indication: ANTACID THERAPY
     Dosage: UNK

REACTIONS (20)
  - Alkalosis [Unknown]
  - Blood urea increased [Unknown]
  - Carbon dioxide increased [Unknown]
  - Aspartate aminotransferase increased [Unknown]
  - Lipase increased [Unknown]
  - Anxiety [Unknown]
  - Electrocardiogram abnormal [Unknown]
  - Glomerular filtration rate decreased [Unknown]
  - Blood bilirubin increased [Unknown]
  - Blood creatinine increased [Unknown]
  - Fatigue [Unknown]
  - Hypercalcaemia of malignancy [Recovering/Resolving]
  - Hypercalcaemia [Unknown]
  - Blood magnesium decreased [Unknown]
  - Globulins increased [Unknown]
  - Constipation [Unknown]
  - Headache [Unknown]
  - Overdose [Unknown]
  - Blood calcium increased [Unknown]
  - Blood phosphorus decreased [Unknown]

NARRATIVE: CASE EVENT DATE: 20180403
